FAERS Safety Report 9877328 (Version 2)
Quarter: 2014Q1

REPORT INFORMATION
  Report Type: Spontaneous
  Country: CH (occurrence: CH)
  Receive Date: 20140206
  Receipt Date: 20140206
  Transmission Date: 20141002
  Serious: Yes (Other)
  Sender: FDA-Public Use
  Company Number: CH-009507513-1208CHE009773

PATIENT
  Age: 38 Year
  Sex: Female

DRUGS (10)
  1. NASONEX [Suspect]
     Indication: NASOPHARYNGITIS
     Dosage: 100 MICROGRAM, Q12H
     Route: 045
     Dates: start: 20120713, end: 20120716
  2. PREDNISONE [Suspect]
     Indication: NASOPHARYNGITIS
     Dosage: 40 MG, Q12H
     Dates: start: 20120713, end: 20120718
  3. CIPROFLOXACIN [Suspect]
     Indication: NASOPHARYNGITIS
     Dosage: 500 MG, Q12H
     Route: 048
     Dates: start: 20120713, end: 20120717
  4. ZALDIAR [Suspect]
     Indication: NASOPHARYNGITIS
     Dosage: 325/37.5 MG PER 12H; 650/75 MG DAILY
     Route: 048
     Dates: start: 20120713, end: 20120716
  5. MUCOSOLVON [Concomitant]
     Indication: NASOPHARYNGITIS
     Dosage: UNK
     Dates: start: 20120713, end: 20120713
  6. IBUPROFEN [Concomitant]
     Indication: NASOPHARYNGITIS
     Dosage: 400 MG, TID
     Route: 048
     Dates: start: 20120713, end: 20120717
  7. AUGMENTIN [Concomitant]
     Indication: NASOPHARYNGITIS
     Dosage: 625 MG, TID
     Route: 048
     Dates: start: 20120717, end: 20120723
  8. RHINOFLUIMUCIL [Concomitant]
     Dosage: 2 SPRAYS, TID
     Dates: start: 20120717
  9. ACETAMINOPHEN [Concomitant]
     Dosage: 500 MG, PERORAL ROUTE
     Route: 048
     Dates: start: 20120717, end: 201207
  10. CORTINASAL [Concomitant]
     Indication: NASOPHARYNGITIS
     Dosage: 100 MICROGRAM, TID
     Route: 045
     Dates: start: 20120717, end: 20120721

REACTIONS (2)
  - Abortion induced [Recovered/Resolved]
  - Exposure during pregnancy [Unknown]
